FAERS Safety Report 4584699-5 (Version None)
Quarter: 2005Q1

REPORT INFORMATION
  Report Type: 
  Country: None (occurrence: None)
  Receive Date: 20050211
  Receipt Date: 20041210
  Transmission Date: 20050727
  Serious: Yes (Hospitalization, Other)
  Sender: FDA-Public Use
  Company Number: 2004114444

PATIENT
  Age: 26 Year
  Sex: Female

DRUGS (4)
  1. BEXTRA [Suspect]
     Indication: ARTHRALGIA
     Dosage: DAILY, ORAL
     Route: 048
     Dates: start: 20010101
  2. FOLIC ACID [Concomitant]
  3. CARVEDILOL [Concomitant]
  4. VICODIN [Concomitant]

REACTIONS (6)
  - CARDIAC DISORDER [None]
  - CHEST PAIN [None]
  - DYSPNOEA [None]
  - FLATULENCE [None]
  - MYOCARDIAL INFARCTION [None]
  - PAIN [None]
